FAERS Safety Report 11823848 (Version 1)
Quarter: 2015Q4

REPORT INFORMATION
  Report Type: Spontaneous
  Country: US (occurrence: US)
  Receive Date: 20151210
  Receipt Date: 20151210
  Transmission Date: 20160305
  Serious: No
  Sender: FDA-Public Use
  Company Number: US-SHIRE-US-002692

PATIENT
  Age: 65 Year
  Sex: Female
  Weight: 90.25 kg

DRUGS (14)
  1. VITAMIN B12 [Concomitant]
     Active Substance: CYANOCOBALAMIN
     Indication: PRODUCT USED FOR UNKNOWN INDICATION
     Dosage: 2000 ?G, 1X/DAY:QD
     Route: 065
  2. CALCIUM [Concomitant]
     Active Substance: CALCIUM
     Indication: HYPOCALCAEMIA
     Dosage: 600 MG, 4 TABS, 1X/DAY:QD
     Route: 048
     Dates: start: 20150618
  3. NATPARA MIXING DEVICE [Suspect]
     Active Substance: DEVICE
     Indication: HYPOPARATHYROIDISM
     Dosage: UNK
     Dates: start: 20150618
  4. MAGNESIUM [Concomitant]
     Active Substance: MAGNESIUM
     Indication: PRODUCT USED FOR UNKNOWN INDICATION
     Dosage: 400 MG, 1X/DAY:QD
     Route: 065
  5. ROCALTROL [Concomitant]
     Active Substance: CALCITRIOL
     Indication: HYPOCALCAEMIA
     Dosage: 0.25 ?G, 1X/DAY:QD
     Route: 065
     Dates: start: 2002
  6. NORVASC [Concomitant]
     Active Substance: AMLODIPINE BESYLATE
     Indication: HYPOTENSION
     Dosage: 5 MG, 1X/DAY:QD
     Route: 065
  7. SEVELAMER CARBONATE. [Concomitant]
     Active Substance: SEVELAMER CARBONATE
     Indication: PROPHYLAXIS
     Dosage: 800 MG, 4X/DAY:QID
  8. ROCALTROL [Concomitant]
     Active Substance: CALCITRIOL
     Dosage: 0.25 ?G, 1X/DAY:QD AS NEEDED FOR MISSED NATPARA DOSE
     Route: 065
     Dates: start: 20151025
  9. NATPARA (PARATHYROID HORMONE) [Suspect]
     Active Substance: PARATHYROID HORMONE
     Indication: HYPOPARATHYROIDISM
     Dosage: 50 ?G, 1X/DAY:QD
     Route: 058
     Dates: start: 20150618
  10. ROCALTROL [Concomitant]
     Active Substance: CALCITRIOL
     Dosage: 0.25 ?G, UNK
     Route: 065
     Dates: start: 20150618
  11. HYDROCHLOROTHIAZIDE. [Concomitant]
     Active Substance: HYDROCHLOROTHIAZIDE
     Indication: PRODUCT USED FOR UNKNOWN INDICATION
     Dosage: 25 MG, 2X/DAY:BID
     Route: 065
  12. HYDROCHLOROTHIAZIDE. [Concomitant]
     Active Substance: HYDROCHLOROTHIAZIDE
     Dosage: 25 MG, UNK
     Route: 065
     Dates: start: 20150618
  13. CALCIUM [Concomitant]
     Active Substance: CALCIUM
     Dosage: 6-10 TABS DAILY
     Route: 048
     Dates: start: 2002
  14. SYNTHROID [Concomitant]
     Active Substance: LEVOTHYROXINE SODIUM
     Indication: HYPOTHYROIDISM
     Dosage: 150 ?G, 1X/DAY:QD
     Route: 065
     Dates: start: 2002

REACTIONS (2)
  - Device difficult to use [Recovered/Resolved]
  - Drug dose omission [Recovered/Resolved]

NARRATIVE: CASE EVENT DATE: 201508
